FAERS Safety Report 9904344 (Version 1)
Quarter: 2014Q1

REPORT INFORMATION
  Report Type: Spontaneous
  Country: US (occurrence: US)
  Receive Date: 20140218
  Receipt Date: 20140218
  Transmission Date: 20141002
  Serious: No
  Sender: FDA-Public Use
  Company Number: US-PFIZER INC-2014041934

PATIENT
  Sex: 0

DRUGS (1)
  1. LATANOPROST [Suspect]
     Dosage: UNK

REACTIONS (4)
  - Product substitution issue [Unknown]
  - Intraocular pressure increased [Unknown]
  - Growth of eyelashes [Unknown]
  - Eyelash thickening [Unknown]
